FAERS Safety Report 18282892 (Version 1)
Quarter: 2020Q3

REPORT INFORMATION
  Report Type: Spontaneous
  Country: US (occurrence: US)
  Receive Date: 20200918
  Receipt Date: 20200918
  Transmission Date: 20201103
  Serious: Yes (Hospitalization)
  Sender: FDA-Public Use
  Company Number: None

PATIENT
  Age: 92 Year
  Sex: Female

DRUGS (13)
  1. LISINOPRIL. [Concomitant]
     Active Substance: LISINOPRIL
  2. TYLENOL [Concomitant]
     Active Substance: ACETAMINOPHEN
  3. VITAMIN C [Concomitant]
     Active Substance: ASCORBIC ACID
  4. DORZOLAMIDE [Concomitant]
     Active Substance: DORZOLAMIDE
  5. LEVOTHYROXINE. [Concomitant]
     Active Substance: LEVOTHYROXINE
  6. VITAMIN B6 [Concomitant]
     Active Substance: PYRIDOXINE HYDROCHLORIDE
  7. CALTRATE [Concomitant]
     Active Substance: CALCIUM CARBONATE
  8. PREDNISONE. [Concomitant]
     Active Substance: PREDNISONE
  9. CENTRUM [Concomitant]
     Active Substance: VITAMINS
  10. ZOLEDRONIC ACID [Suspect]
     Active Substance: ZOLEDRONIC ACID
     Indication: OSTEOPOROSIS
     Dosage: ?          OTHER FREQUENCY:ONCE EVERY 2 YEARS;?
     Route: 042
  11. ATENOLOL. [Concomitant]
     Active Substance: ATENOLOL
  12. LUMIGAN [Concomitant]
     Active Substance: BIMATOPROST
  13. ZANTAC [Concomitant]
     Active Substance: RANITIDINE HYDROCHLORIDE

REACTIONS (5)
  - Urinary tract infection [None]
  - Illness [None]
  - Decubitus ulcer [None]
  - Bacterial test positive [None]
  - Dehydration [None]

NARRATIVE: CASE EVENT DATE: 20200917
